FAERS Safety Report 4530424-3 (Version None)
Quarter: 2004Q4

REPORT INFORMATION
  Report Type: 
  Country: None (occurrence: None)
  Receive Date: 20041215
  Receipt Date: 20041117
  Transmission Date: 20050328
  Serious: Yes (Other)
  Sender: FDA-Public Use
  Company Number: 2004236567US

PATIENT
  Age: 75 Year
  Sex: Male
  Weight: 69 kg

DRUGS (6)
  1. BEXTRA [Suspect]
     Indication: EXOSTOSIS
     Dosage: 20 MG (10 MG, 2 IN 1 D), ORAL
     Route: 048
     Dates: start: 20040701
  2. MOXIFLOXACIN HCL [Suspect]
     Indication: BRONCHIECTASIS
     Dates: end: 20040924
  3. TERAZOSIN HYDROCHLORIDE [Concomitant]
  4. CLONAZEPAM [Concomitant]
  5. ZOLPIDEM TARTRATE [Concomitant]
  6. VITAMINS (VITAMINS) [Concomitant]

REACTIONS (10)
  - ABASIA [None]
  - ANAPHYLACTIC REACTION [None]
  - ARTHRALGIA [None]
  - BACK PAIN [None]
  - DRUG INTERACTION [None]
  - FACE INJURY [None]
  - FEELING HOT [None]
  - HAEMOPTYSIS [None]
  - SYNCOPE [None]
  - VOMITING [None]
